FAERS Safety Report 4463844-6 (Version None)
Quarter: 2004Q3

REPORT INFORMATION
  Report Type: 
  Country: None (occurrence: None)
  Receive Date: 20040929
  Receipt Date: 20040917
  Transmission Date: 20050211
  Serious: Yes (Hospitalization)
  Sender: FDA-Public Use
  Company Number: 2002SE05760

PATIENT
  Age: 55 Year
  Sex: Male
  Weight: 69 kg

DRUGS (5)
  1. CANDESARTAN CILEXETIL [Suspect]
     Indication: HYPERTENSION
     Dates: start: 20020108
  2. NEORAL [Concomitant]
  3. CELLCEPT [Concomitant]
  4. SOLUPRED [Concomitant]
  5. MOPRAL [Concomitant]

REACTIONS (2)
  - GLOMERULONEPHRITIS MEMBRANOUS [None]
  - TOOTH INFECTION [None]
